FAERS Safety Report 9267229 (Version 2)
Quarter: 2013Q2

REPORT INFORMATION
  Report Type: Report from Study
  Country: CA (occurrence: CA)
  Receive Date: 20130502
  Receipt Date: 20130508
  Transmission Date: 20140414
  Serious: Yes (Death, Other)
  Sender: FDA-Public Use
  Company Number: PHHY2013CA043087

PATIENT
  Age: 78 Year
  Sex: Female

DRUGS (2)
  1. ACLASTA [Suspect]
     Indication: OSTEOPOROSIS
     Dosage: UNK, ONCE IN A YEAR
     Route: 042
     Dates: start: 20110419
  2. ACLASTA [Suspect]
     Dosage: UNK, ONCE IN A YEAR
     Route: 042
     Dates: start: 20120420

REACTIONS (3)
  - Death [Fatal]
  - Lumbar vertebral fracture [Unknown]
  - Arthralgia [Unknown]
